FAERS Safety Report 5597897-9 (Version None)
Quarter: 2007Q4

REPORT INFORMATION
  Report Type: 
  Country: None (occurrence: None)
  Receive Date: 20071221
  Receipt Date: 20071108
  Transmission Date: 20080405
  Serious: Yes (Hospitalization)
  Sender: FDA-Public Use
  Company Number: US200708006975

PATIENT
  Age: 60 Year
  Sex: Male

DRUGS (1)
  1. HUMALOG PEN [Suspect]
     Dosage: UNK, AS NEEDED, UNK

REACTIONS (1)
  - BLOOD GLUCOSE INCREASED [None]
